FAERS Safety Report 9948619 (Version 3)
Quarter: 2014Q2

REPORT INFORMATION
  Report Type: Report from Study
  Country: CA (occurrence: CA)
  Receive Date: 20140304
  Receipt Date: 20140402
  Transmission Date: 20141212
  Serious: No
  Sender: FDA-Public Use
  Company Number: CA-ROCHE-1328020

PATIENT
  Age: 73 Year
  Sex: Female
  Weight: 73.5 kg

DRUGS (15)
  1. RITUXAN [Suspect]
     Indication: RHEUMATOID ARTHRITIS
     Route: 042
     Dates: start: 20130815
  2. ACETAMINOPHEN [Concomitant]
     Indication: PREMEDICATION
     Route: 048
     Dates: start: 20130815
  3. METHYLPREDNISOLONE [Concomitant]
     Indication: PREMEDICATION
     Route: 042
     Dates: start: 20130815
  4. RABEPRAZOLE [Concomitant]
  5. DICLOFENAC [Concomitant]
  6. ATORVASTATIN [Concomitant]
  7. LORAZEPAM [Concomitant]
  8. CODEINE [Concomitant]
  9. FLOVENT [Concomitant]
  10. RISEDRONATE [Concomitant]
  11. AMLODIPINE [Concomitant]
  12. VITAMIN C [Concomitant]
  13. SELENIUM [Concomitant]
  14. METHOTREXATE [Concomitant]
  15. FOLIC ACID [Concomitant]

REACTIONS (3)
  - Weight increased [Unknown]
  - Joint swelling [Unknown]
  - Blood pressure increased [Unknown]
